FAERS Safety Report 6700203-7 (Version None)
Quarter: 2010Q2

REPORT INFORMATION
  Report Type: 
  Country: None (occurrence: None)
  Receive Date: 20100428
  Receipt Date: 20100420
  Transmission Date: 20101027
  Serious: Yes (Other)
  Sender: FDA-Public Use
  Company Number: SE-PFIZER INC-2010050104

PATIENT

DRUGS (1)
  1. SUTENT [Suspect]
     Dosage: 25 MG, UNK
     Dates: start: 20080101

REACTIONS (3)
  - DISEASE PROGRESSION [None]
  - MYOCARDIAL INFARCTION [None]
  - NEOPLASM MALIGNANT [None]
